FAERS Safety Report 10162864 (Version 2)
Quarter: 2014Q2

REPORT INFORMATION
  Report Type: Report from Study
  Country: IT (occurrence: IT)
  Receive Date: 20140509
  Receipt Date: 20140509
  Transmission Date: 20141212
  Serious: Yes (Death, Life-Threatening, Hospitalization)
  Sender: FDA-Public Use
  Company Number: PHHY2013IT081020

PATIENT
  Age: 64 Year
  Sex: Male

DRUGS (3)
  1. CERTICAN [Suspect]
     Indication: IMMUNOSUPPRESSION
     Dosage: 0.75 MG, UNK
     Dates: start: 20020207
  2. CERTICAN [Suspect]
     Dosage: 0.5 MG, DAILY
     Dates: start: 20090207
  3. CICLOSPORIN [Suspect]
     Indication: IMMUNOSUPPRESSION
     Dosage: 100 MG, DAILY
     Route: 048
     Dates: start: 20090207

REACTIONS (4)
  - Cachexia [Fatal]
  - Gastric perforation [Recovered/Resolved with Sequelae]
  - Gastric disorder [Recovered/Resolved with Sequelae]
  - Bladder pain [Unknown]
